FAERS Safety Report 9346520 (Version 1)
Quarter: 2013Q2

REPORT INFORMATION
  Report Type: Spontaneous
  Country: CH (occurrence: CH)
  Receive Date: 20130613
  Receipt Date: 20130613
  Transmission Date: 20140414
  Serious: Yes (Other)
  Sender: FDA-Public Use
  Company Number: CH-BAYER-2013-072900

PATIENT
  Age: 67 Year
  Sex: Male

DRUGS (8)
  1. ULTRAVIST [Suspect]
     Indication: MYOCARDIAL ISCHAEMIA
     Dosage: 1 DF, PRN
     Route: 042
     Dates: start: 20130516, end: 20130516
  2. SEROQUEL [Concomitant]
     Dosage: 12.5 MG, QD
     Route: 048
  3. TEMESTA [Concomitant]
     Dosage: 7 MG, UNK
     Route: 048
  4. BENERVA [Concomitant]
     Dosage: 300 MG, QD
     Route: 048
  5. BECOZYME [Concomitant]
     Dosage: 1 DF, QD
     Route: 048
  6. MAGNESIOCARD [Concomitant]
     Dosage: 5 MMOL, TID
     Route: 048
  7. SPIRIVA [Concomitant]
     Dosage: 18 ?G, QD
     Route: 055
  8. SYMBICORT [Concomitant]
     Dosage: 4 DF, UNK
     Route: 055

REACTIONS (3)
  - Type I hypersensitivity [Recovered/Resolved]
  - Vomiting [Recovered/Resolved]
  - Formication [Recovered/Resolved]
